FAERS Safety Report 6011008-7 (Version None)
Quarter: 2008Q4

REPORT INFORMATION
  Report Type: 
  Country: None (occurrence: None)
  Receive Date: 20081218
  Receipt Date: 20081216
  Transmission Date: 20090506
  Serious: Yes (Other)
  Sender: FDA-Public Use
  Company Number: B0550996A

PATIENT
  Age: 43 Year
  Sex: Female

DRUGS (1)
  1. AROPAX [Suspect]
     Dosage: 10MG PER DAY
     Route: 065
     Dates: start: 20081212, end: 20081214

REACTIONS (3)
  - FEELING ABNORMAL [None]
  - IMPAIRED WORK ABILITY [None]
  - STUPOR [None]
